FAERS Safety Report 9741437 (Version 1)
Quarter: 2013Q4

REPORT INFORMATION
  Report Type: Spontaneous
  Country: FR (occurrence: FR)
  Receive Date: 20131209
  Receipt Date: 20131209
  Transmission Date: 20140711
  Serious: Yes (Other)
  Sender: FDA-Public Use
  Company Number: PHHY2013FR143280

PATIENT
  Age: 63 Year
  Sex: Female
  Weight: 78 kg

DRUGS (8)
  1. AFINITOR [Suspect]
     Indication: BREAST CANCER
     Dosage: 10 MG, UNK
     Route: 048
     Dates: start: 20130819, end: 20130829
  2. AFINITOR [Suspect]
     Dosage: 10 MG, UNK
     Route: 048
     Dates: start: 20131014, end: 20131117
  3. AROMASINE [Concomitant]
     Route: 048
  4. PANTOPRAZOLE [Concomitant]
     Route: 048
  5. STAGID [Concomitant]
  6. DIAMICRON [Concomitant]
  7. APROVEL [Concomitant]
  8. ALLOPURINOL [Concomitant]

REACTIONS (2)
  - Anal fissure [Recovering/Resolving]
  - Haemorrhoids [Unknown]
